FAERS Safety Report 9275775 (Version 1)
Quarter: 2013Q2

REPORT INFORMATION
  Report Type: Spontaneous
  Country: US (occurrence: US)
  Receive Date: 20130507
  Receipt Date: 20130507
  Transmission Date: 20140414
  Serious: Yes (Hospitalization, Other)
  Sender: FDA-Public Use
  Company Number: US-SANOFI-AVENTIS-2013SA044710

PATIENT
  Age: 75 Year
  Sex: Female

DRUGS (18)
  1. MULTAQ [Suspect]
     Indication: ATRIAL FIBRILLATION
     Dates: start: 2012, end: 201212
  2. AVALIDE [Concomitant]
  3. NEBIVOLOL [Concomitant]
  4. HYDROCHLOROTHIAZIDE/LOSARTAN POTASSIUM [Concomitant]
  5. FERROUS SULFATE [Concomitant]
  6. PRAVACHOL [Concomitant]
  7. POTASSIUM [Concomitant]
  8. ASPIRIN [Concomitant]
  9. DIGOXIN [Concomitant]
  10. FUROSEMIDE [Concomitant]
  11. IMDUR [Concomitant]
  12. GLUCOTROL [Concomitant]
  13. MAGNESIUM OXIDE [Concomitant]
  14. ZOLPIDEM TARTRATE [Concomitant]
  15. PROTONIX [Concomitant]
  16. PLAVIX [Concomitant]
  17. DOCUSATE [Concomitant]
  18. DICYCLOMINE [Concomitant]
     Indication: GASTRIC DISORDER

REACTIONS (5)
  - Influenza [Unknown]
  - Gastric polyps [Unknown]
  - Cardiac failure congestive [Unknown]
  - Chest pain [Unknown]
  - Fluid retention [Unknown]
